FAERS Safety Report 8193171-5 (Version None)
Quarter: 2012Q1

REPORT INFORMATION
  Report Type: 
  Country: None (occurrence: None)
  Receive Date: 20120221
  Receipt Date: 20110718
  Transmission Date: 20120608
  Serious: No
  Sender: FDA-Public Use
  Company Number: 037014

PATIENT
  Age: 35 Year
  Sex: Female

DRUGS (1)
  1. LACOSAMIDE [Suspect]
     Dosage: (500 MG, 200 MG EVERY MORNING AND 300 MG EVERY NIGHT)

REACTIONS (1)
  - CONVULSION [None]
